FAERS Safety Report 22823541 (Version 5)
Quarter: 2024Q1

REPORT INFORMATION
  Report Type: Spontaneous
  Country: US (occurrence: US)
  Receive Date: 20230815
  Receipt Date: 20240209
  Transmission Date: 20240409
  Serious: No
  Sender: FDA-Public Use
  Company Number: US-PFIZER INC-PV202300114262

PATIENT
  Age: 13 Year
  Sex: Male
  Weight: 36.281 kg

DRUGS (9)
  1. GENOTROPIN [Suspect]
     Active Substance: SOMATROPIN
     Indication: Growth hormone deficiency
     Dosage: 1.2 MG, DAILY
  2. GENOTROPIN [Suspect]
     Active Substance: SOMATROPIN
     Dosage: 1.4 MG, DAILY
  3. GENOTROPIN [Suspect]
     Active Substance: SOMATROPIN
     Dosage: UNK
  4. GENOTROPIN [Suspect]
     Active Substance: SOMATROPIN
     Dosage: 1.6 MG, 1X/DAY (AT NIGHT. PUT IT IN LEGS MOSTLY AND TRY TO MOVE IT AROUND)
     Dates: start: 202305
  5. OXCARBAZEPINE [Concomitant]
     Active Substance: OXCARBAZEPINE
     Indication: Seizure
     Dosage: 750 MG, 2X/DAY (ONCE IN MORNING AND ONCE AT NIGHT)
     Route: 048
     Dates: start: 2018
  6. VYVANSE [Concomitant]
     Active Substance: LISDEXAMFETAMINE DIMESYLATE
     Indication: Attention deficit hyperactivity disorder
     Dosage: 40 MG, 1X/DAY (IN THE MORNING)
     Route: 048
  7. LISINOPRIL [Concomitant]
     Active Substance: LISINOPRIL
     Indication: Ejection fraction decreased
     Dosage: 10 MG, 1X/DAY (AT NIGHT)
     Route: 048
     Dates: start: 2020
  8. LEXAPRO [Concomitant]
     Active Substance: ESCITALOPRAM OXALATE
     Indication: Anxiety
     Dosage: 20 MG, 1X/DAY (AT NIGHT)
     Route: 048
     Dates: start: 2019
  9. CLONIDINE [Concomitant]
     Active Substance: CLONIDINE
     Indication: Insomnia
     Dosage: 1 MG, 1X/DAY (AT NIGHT)
     Route: 048
     Dates: start: 2021

REACTIONS (7)
  - Injection site pain [Unknown]
  - Dose calculation error [Unknown]
  - Incorrect dose administered by device [Unknown]
  - Product label confusion [Unknown]
  - Device mechanical issue [Unknown]
  - Injection site reaction [Recovered/Resolved]
  - Injection site bruising [Unknown]

NARRATIVE: CASE EVENT DATE: 20230501
